FAERS Safety Report 18283371 (Version 1)
Quarter: 2020Q3

REPORT INFORMATION
  Report Type: Spontaneous
  Country: AU (occurrence: AU)
  Receive Date: 20200918
  Receipt Date: 20200918
  Transmission Date: 20201103
  Serious: Yes (Other)
  Sender: FDA-Public Use
  Company Number: AU-MYLANLABS-2020M1080028

PATIENT
  Age: 60 Year
  Sex: Female

DRUGS (3)
  1. LAMOTRIGINE. [Suspect]
     Active Substance: LAMOTRIGINE
     Indication: EPILEPSY
     Dosage: 700 MILLIGRAM, QD, 300MG IN THE MORNING AND 400MG AT NIGHT
     Route: 065
  2. LAMOTRIGINE. [Interacting]
     Active Substance: LAMOTRIGINE
     Dosage: LAMOTRIGINE DOSE WAS INCREASED TO 400MG IN THE MORNING AND 600MG IN THE NIGHT.UNK
     Route: 065
  3. LEVETIRACETAM. [Concomitant]
     Active Substance: LEVETIRACETAM
     Indication: EPILEPSY
     Dosage: 3 GRAM, QD, 1G IN THE MORNING AND 2G AT NIGHT
     Route: 065

REACTIONS (5)
  - Anticonvulsant drug level below therapeutic [Recovered/Resolved]
  - Drug ineffective [Recovered/Resolved]
  - Impaired driving ability [Recovered/Resolved]
  - Drug interaction [Recovered/Resolved]
  - Impaired quality of life [Recovered/Resolved]
